FAERS Safety Report 9510485 (Version 2)
Quarter: 2013Q3

REPORT INFORMATION
  Report Type: Report from Study
  Country: US (occurrence: US)
  Receive Date: 20130909
  Receipt Date: 20130909
  Transmission Date: 20140515
  Serious: Yes (Hospitalization, Other)
  Sender: FDA-Public Use
  Company Number: US-TAKEDA-TPA2013A01608

PATIENT
  Age: 79 Year
  Sex: Male
  Weight: 94.7 kg

DRUGS (14)
  1. ALLOPURINOL [Suspect]
     Indication: HYPERURICAEMIA
     Dosage: UNK, QD
     Route: 048
     Dates: start: 20120618, end: 20130213
  2. FEBUXOSTAT [Suspect]
     Indication: HYPERURICAEMIA
     Dosage: UNK, QD
     Route: 048
     Dates: start: 20120618, end: 20130213
  3. ALLOPURINOL [Suspect]
     Dosage: UNK UNK, QD
     Route: 048
     Dates: start: 20130218
  4. FEBUXOSTAT [Suspect]
     Dosage: UNK UNK, QD
     Route: 048
     Dates: start: 20130218
  5. WARFARIN [Concomitant]
     Indication: ATRIAL FIBRILLATION
     Dosage: 9 MG, QD
     Route: 048
     Dates: start: 2006
  6. LISINOPRIL [Concomitant]
     Indication: HYPERTENSION
     Dosage: 40 MG, QD
     Route: 048
     Dates: start: 2006
  7. DILTIAZEM [Concomitant]
     Indication: HYPERTENSION
     Dosage: 180 MG, QD
     Route: 048
     Dates: start: 20120605
  8. DILTIAZEM [Concomitant]
     Indication: ATRIAL FIBRILLATION
  9. NIACIN [Concomitant]
     Indication: HYPERLIPIDAEMIA
     Dosage: 1000 MG, BID
     Route: 048
     Dates: start: 2003
  10. POTASSIUM CHLORIDE [Concomitant]
     Indication: PROPHYLAXIS
     Dosage: 40 MG, BID
     Route: 048
     Dates: start: 2003
  11. METOPROLOL [Concomitant]
     Indication: HYPERTENSION
     Dosage: 50 MG, BID
     Route: 048
     Dates: start: 2006
  12. OMEPRAZOLE [Concomitant]
     Indication: GASTROOESOPHAGEAL REFLUX DISEASE
     Dosage: 20 MG, UNK
     Route: 048
     Dates: start: 2011
  13. FUROSEMIDE [Concomitant]
     Indication: HYPERTENSION
     Dosage: 40 MG, UNK
     Route: 048
     Dates: start: 2003
  14. VITAMIN E                          /00110501/ [Concomitant]
     Indication: ROUTINE HEALTH MAINTENANCE
     Dosage: 1000 MG, QD
     Route: 048
     Dates: start: 1993

REACTIONS (1)
  - Intestinal obstruction [Recovered/Resolved]
